FAERS Safety Report 10080310 (Version 2)
Quarter: 2014Q2

REPORT INFORMATION
  Report Type: Report from Study
  Country: CA (occurrence: CA)
  Receive Date: 20140415
  Receipt Date: 20140630
  Transmission Date: 20141212
  Serious: Yes (Hospitalization, Other)
  Sender: FDA-Public Use
  Company Number: CA-GILEAD-2014-0099591

PATIENT
  Age: 23 Year
  Sex: Female

DRUGS (2)
  1. AZTREONAM LYSINE [Suspect]
     Indication: CYSTIC FIBROSIS
     Dosage: 75 MG, UNK
     Route: 055
     Dates: start: 201304, end: 20131113
  2. AZTREONAM LYSINE [Suspect]
     Dosage: 75 MG, 3 DOSES PER DAY
     Route: 055

REACTIONS (7)
  - Treatment noncompliance [Recovering/Resolving]
  - Infective pulmonary exacerbation of cystic fibrosis [Unknown]
  - Bacterial disease carrier [Unknown]
  - Dyspnoea [Unknown]
  - Cough [Unknown]
  - Productive cough [Unknown]
  - Pulmonary function test decreased [Unknown]
